FAERS Safety Report 5930137-7 (Version None)
Quarter: 2008Q4

REPORT INFORMATION
  Report Type: 
  Country: None (occurrence: None)
  Receive Date: 20081024
  Receipt Date: 20081014
  Transmission Date: 20090506
  Serious: Yes (Congenital Anomaly)
  Sender: FDA-Public Use
  Company Number: FR-PFIZER INC-2008086817

PATIENT
  Sex: Male

DRUGS (4)
  1. XANAX [Suspect]
     Route: 064
  2. PROFENID [Suspect]
     Route: 064
  3. EFFEXOR [Suspect]
     Route: 064
  4. SUBUTEX [Suspect]
     Route: 064

REACTIONS (4)
  - DRUG EXPOSURE DURING PREGNANCY [None]
  - DRUG WITHDRAWAL SYNDROME NEONATAL [None]
  - EXOMPHALOS [None]
  - MATERNAL DRUGS AFFECTING FOETUS [None]
